FAERS Safety Report 6290256-5 (Version None)
Quarter: 2009Q3

REPORT INFORMATION
  Report Type: 
  Country: None (occurrence: None)
  Receive Date: 20090730
  Receipt Date: 20090202
  Transmission Date: 20100115
  Serious: No
  Sender: FDA-Public Use
  Company Number: US-BRISTOL-MYERS SQUIBB COMPANY-14491005

PATIENT
  Age: 54 Year
  Sex: Female

DRUGS (4)
  1. WARFARIN SODIUM [Suspect]
     Indication: DEEP VEIN THROMBOSIS
     Dosage: 7.5 MG ONCE ON TUESDAY,LOT 081226,FORMULATION TAB. 09/JAN/09 5 MG 5 DAY A WEEK AND 7.5 MG TWICE WEEK
     Route: 048
     Dates: start: 20090102, end: 20090108
  2. PLAVIX [Concomitant]
     Dates: start: 20090102
  3. LOVENOX [Concomitant]
     Route: 058
     Dates: start: 20090102
  4. LEVOTHYROXINE SODIUM [Concomitant]

REACTIONS (2)
  - DRUG INEFFECTIVE [None]
  - INTERNATIONAL NORMALISED RATIO DECREASED [None]
